FAERS Safety Report 10241088 (Version 2)
Quarter: 2014Q2

REPORT INFORMATION
  Report Type: Report from Study
  Country: FR (occurrence: FR)
  Receive Date: 20140617
  Receipt Date: 20140617
  Transmission Date: 20141212
  Serious: Yes (Death, Hospitalization)
  Sender: FDA-Public Use
  Company Number: FR-SA-THYM-1000883

PATIENT
  Age: 62 Year
  Sex: Female
  Weight: 74 kg

DRUGS (43)
  1. ANTI-THYMOCYTE GLOBULIN (RABBIT) [Suspect]
     Indication: BONE MARROW CONDITIONING REGIMEN
     Dosage: 185 MG/DAY, QD DOSE:185 MILLIGRAM(S)/24 HOURS
     Route: 065
     Dates: start: 20081119, end: 20081120
  2. FLUDARABINE PHOSPHATE [Suspect]
     Indication: BONE MARROW CONDITIONING REGIMEN
     Dosage: UNK MG/DAY, UNK
     Route: 042
     Dates: start: 20081115, end: 20081119
  3. ALLOPURINOL [Suspect]
     Indication: PRODUCT USED FOR UNKNOWN INDICATION
     Dosage: ROUTE: ENT
     Route: 048
     Dates: start: 20081120, end: 20081204
  4. METHOTREXATE [Suspect]
     Indication: PROPHYLAXIS AGAINST TRANSPLANT REJECTION
     Dosage: UNK UNK, QOD
     Route: 065
     Dates: start: 20081122, end: 20081202
  5. PIPERACILLIN SODIUM/TAZOBACTAM SODIUM [Suspect]
     Indication: KLEBSIELLA INFECTION
     Dosage: UNK UNK, UNK
     Route: 065
     Dates: start: 20081120, end: 20081128
  6. TREOSULFAN [Suspect]
     Indication: BONE MARROW CONDITIONING REGIMEN
     Dosage: 21 G/DAY, UNK DOSE:21 GRAM(S)/24 HOURS
     Route: 042
     Dates: start: 20081115, end: 20081117
  7. RASBURICASE [Suspect]
     Indication: HYPERURICAEMIA
     Dosage: UNK UNK, UNK
     Route: 042
     Dates: start: 20081114, end: 20081114
  8. TRAMADOL HYDROCHLORIDE [Suspect]
     Indication: PAIN
     Dosage: UNK UNK, UNK
     Route: 042
     Dates: start: 20081119, end: 20081204
  9. CIPROFLOXACIN HYDROCHLORIDE [Suspect]
     Indication: PRODUCT USED FOR UNKNOWN INDICATION
     Dosage: UNK UNK, UNK
     Route: 065
     Dates: start: 20081124, end: 20081128
  10. PANTOPRAZOLE [Suspect]
     Indication: PRODUCT USED FOR UNKNOWN INDICATION
     Dosage: ROUTE: ENT
     Dates: start: 20081113, end: 20081204
  11. CICLOSPORIN [Concomitant]
     Indication: PROPHYLAXIS AGAINST TRANSPLANT REJECTION
     Dosage: UNK UNK, QOD
     Route: 065
     Dates: start: 20081122, end: 20081127
  12. CYAMEMAZINE [Concomitant]
     Indication: DEPRESSION
     Dosage: 25 DROPS PER DAY
     Route: 065
     Dates: end: 20081204
  13. CYAMEMAZINE [Concomitant]
     Indication: ANXIETY
     Dosage: 25 DROPS PER DAY
     Route: 065
     Dates: end: 20081204
  14. CLOMIPRAMINE HYDROCHLORIDE [Concomitant]
     Indication: DEPRESSION
     Dosage: UNK UNK, UNK
     Route: 065
     Dates: end: 20081204
  15. CLOMIPRAMINE HYDROCHLORIDE [Concomitant]
     Indication: ANXIETY
     Dosage: UNK UNK, UNK
     Route: 065
     Dates: end: 20081204
  16. LORAZEPAM [Concomitant]
     Indication: DEPRESSION
     Dosage: UNK UNK, UNK
     Route: 065
     Dates: end: 20081204
  17. LORAZEPAM [Concomitant]
     Indication: ANXIETY
     Dosage: UNK UNK, UNK
     Route: 065
     Dates: end: 20081204
  18. NOCTRAN [Concomitant]
     Indication: DEPRESSION
     Dosage: UNK UNK, UNK
     Route: 065
     Dates: end: 20081204
  19. NOCTRAN [Concomitant]
     Indication: ANXIETY
     Dosage: UNK UNK, UNK
     Route: 065
     Dates: end: 20081204
  20. VALSARTAN [Concomitant]
     Dosage: UNK UNK, UNK
     Route: 065
     Dates: end: 20081204
  21. BISOPROLOL [Concomitant]
     Dosage: UNK UNK, UNK
     Route: 065
     Dates: end: 20081204
  22. FUROSEMIDE [Concomitant]
     Dosage: UNK UNK, UNK
     Route: 065
     Dates: start: 20081120, end: 20081124
  23. LOPERAMIDE [Concomitant]
     Indication: DIARRHOEA
     Dosage: UNK UNK, UNK
     Route: 048
     Dates: start: 20081123, end: 20081204
  24. METRONIDAZOLE [Concomitant]
     Indication: DIARRHOEA
     Dosage: 500 MG/100 ML
     Route: 065
     Dates: start: 20081125, end: 20081204
  25. AMIODARONE HYDROCHLORIDE [Concomitant]
     Indication: ARRHYTHMIA
     Dosage: UNK UNK, UNK
     Route: 042
     Dates: start: 20081124, end: 20081128
  26. DIGOXIN [Concomitant]
     Indication: ARRHYTHMIA
     Dosage: UNK UNK, UNK
     Route: 065
  27. ONDANSETRON HYDROCHLORIDE [Concomitant]
     Dosage: UNK UNK, UNK
     Route: 065
     Dates: start: 20081115, end: 20081119
  28. MACROGOL [Concomitant]
     Indication: LAXATIVE SUPPORTIVE CARE
     Dosage: 2 SACHETS/DAY
     Route: 065
     Dates: end: 20081204
  29. DIAZEPAM [Concomitant]
     Dosage: UNK UNK, UNK
     Route: 065
  30. VORICONAZOLE [Concomitant]
     Dosage: UNK UNK, UNK
     Route: 065
     Dates: start: 200807, end: 20081204
  31. OMEPRAZOLE [Concomitant]
     Dates: end: 20081204
  32. DAFALGAN [Concomitant]
     Dates: end: 20081204
  33. BETAGAN [Concomitant]
     Dosage: 1 DROP/DAY
     Dates: start: 20081113, end: 20081204
  34. VITAMIN D [Concomitant]
     Dosage: ONE APPLICATION
     Dates: start: 20081113, end: 20081204
  35. PRIMPERAN [Concomitant]
     Dosage: 2 AMPOULES/DAY
     Dates: start: 20081115, end: 20081119
  36. FUNGIZONE [Concomitant]
     Dates: start: 20081115, end: 20081204
  37. VANCOMYCIN [Concomitant]
     Dates: start: 20081115, end: 20081204
  38. POLARAMINE [Concomitant]
     Dates: start: 20081119, end: 20081120
  39. SOLU-MEDROL [Concomitant]
     Dates: start: 20081119, end: 20081120
  40. ZOVIRAX [Concomitant]
     Dates: start: 20081122, end: 20081204
  41. SMECTA [Concomitant]
     Indication: DIARRHOEA
     Dosage: 2 SACHETS/DAY
     Dates: start: 20081124, end: 20081204
  42. DOBUTREX [Concomitant]
     Indication: ARRHYTHMIA
     Dates: start: 20081124, end: 20081128
  43. LOXEN [Concomitant]
     Dates: start: 20081125, end: 20081204

REACTIONS (2)
  - Toxic epidermal necrolysis [Fatal]
  - Cholestasis [Unknown]
